FAERS Safety Report 6375459-3 (Version None)
Quarter: 2009Q3

REPORT INFORMATION
  Report Type: 
  Country: None (occurrence: None)
  Receive Date: 20090924
  Receipt Date: 20090911
  Transmission Date: 20100115
  Serious: Yes (Hospitalization, Other)
  Sender: FDA-Public Use
  Company Number: US-ROCHE-638494

PATIENT
  Sex: Male

DRUGS (5)
  1. ROCEPHIN [Suspect]
     Dosage: GIVEN 2 GRAM IV EVERY MORNING.
     Route: 065
     Dates: start: 20060525, end: 20060605
  2. VANCOMYCIN [Suspect]
     Route: 042
     Dates: start: 20060524, end: 20060606
  3. TYGACIL [Concomitant]
  4. DIFLUCAN [Concomitant]
  5. PRIMAXIN [Concomitant]

REACTIONS (13)
  - CHILLS [None]
  - DISSEMINATED INTRAVASCULAR COAGULATION [None]
  - GASTROENTERITIS [None]
  - GASTROINTESTINAL HAEMORRHAGE [None]
  - HYPONATRAEMIA [None]
  - HYPOTENSION [None]
  - PYREXIA [None]
  - RENAL FAILURE ACUTE [None]
  - RHABDOMYOLYSIS [None]
  - SEPSIS SYNDROME [None]
  - STEVENS-JOHNSON SYNDROME [None]
  - UPPER RESPIRATORY TRACT INFECTION [None]
  - VOMITING [None]
